FAERS Safety Report 4621693-X (Version None)
Quarter: 2005Q1

REPORT INFORMATION
  Report Type: 
  Country: None (occurrence: None)
  Receive Date: 20050329
  Receipt Date: 20041220
  Transmission Date: 20050727
  Serious: Yes (Life-Threatening, Hospitalization)
  Sender: FDA-Public Use
  Company Number: UA-BOEHRINGER INGELHEIM PHARMMACEUTICALS, INC.-2004-BP-14039BP

PATIENT
  Sex: Male
  Weight: 62 kg

DRUGS (10)
  1. MICARDIS [Suspect]
     Indication: CARDIOVASCULAR DISORDER
     Route: 048
     Dates: start: 20030326, end: 20041210
  2. MICARDIS [Suspect]
     Indication: CEREBROVASCULAR ACCIDENT PROPHYLAXIS
  3. RAMIPRIL [Suspect]
     Indication: CARDIOVASCULAR DISORDER
     Route: 048
     Dates: start: 20030326, end: 20041210
  4. RAMIPRIL [Suspect]
     Indication: CEREBROVASCULAR ACCIDENT PROPHYLAXIS
  5. NIFEDIPINUM [Concomitant]
  6. BETAXOLOL [Concomitant]
  7. DOXAZOSIN [Concomitant]
  8. FUROSEMIDE [Concomitant]
  9. ASPIRIN [Concomitant]
  10. RENAL DIALYSIS [Concomitant]

REACTIONS (5)
  - BLOOD POTASSIUM INCREASED [None]
  - DIALYSIS [None]
  - DYSPNOEA [None]
  - HYPERTENSION [None]
  - RENAL FAILURE [None]
